FAERS Safety Report 15544785 (Version 1)
Quarter: 2018Q4

REPORT INFORMATION
  Report Type: Spontaneous
  Country: US (occurrence: US)
  Receive Date: 20181024
  Receipt Date: 20181024
  Transmission Date: 20190205
  Serious: No
  Sender: FDA-Public Use
  Company Number: US-EMD SERONO-231952K06USA

PATIENT
  Sex: Male

DRUGS (1)
  1. REBIF [Suspect]
     Active Substance: INTERFERON BETA-1A
     Indication: MULTIPLE SCLEROSIS
     Route: 058
     Dates: start: 20050117

REACTIONS (4)
  - Asthma [Recovering/Resolving]
  - Emphysema [Recovering/Resolving]
  - Middle insomnia [Unknown]
  - Injection site bruising [Unknown]

NARRATIVE: CASE EVENT DATE: 2005
